FAERS Safety Report 15710053 (Version 1)
Quarter: 2018Q4

REPORT INFORMATION
  Report Type: Spontaneous
  Country: US (occurrence: US)
  Receive Date: 20181211
  Receipt Date: 20181211
  Transmission Date: 20190205
  Serious: Yes (Other)
  Sender: FDA-Public Use
  Company Number: PHHY2018US179238

PATIENT
  Age: 41 Year
  Sex: Male

DRUGS (1)
  1. ETANERCEPT [Suspect]
     Active Substance: ETANERCEPT
     Indication: DERMATITIS EXFOLIATIVE GENERALISED
     Dosage: UNK
     Route: 065

REACTIONS (3)
  - Lymphomatoid papulosis [Recovered/Resolved]
  - Mycosis fungoides stage IV [Recovered/Resolved]
  - Product use in unapproved indication [Unknown]
